FAERS Safety Report 10042893 (Version 2)
Quarter: 2014Q1

REPORT INFORMATION
  Report Type: Spontaneous
  Country: RU (occurrence: RU)
  Receive Date: 20140328
  Receipt Date: 20140328
  Transmission Date: 20141002
  Serious: Yes (Life-Threatening, Hospitalization)
  Sender: FDA-Public Use
  Company Number: RU-ABBVIE-12P-251-1000403-00

PATIENT
  Age: 24 Month
  Sex: Male

DRUGS (3)
  1. DEPAKINE CHRONO [Suspect]
     Indication: HYDROCEPHALUS
     Route: 048
     Dates: start: 201203, end: 201206
  2. DEPAKINE CHRONO [Suspect]
     Route: 048
     Dates: start: 201206
  3. KEPPRA [Concomitant]
     Indication: PRODUCT USED FOR UNKNOWN INDICATION

REACTIONS (6)
  - Blindness [Recovering/Resolving]
  - Movement disorder [Not Recovered/Not Resolved]
  - Deafness [Recovered/Resolved]
  - Convulsion [Not Recovered/Not Resolved]
  - Drug ineffective [Unknown]
  - Product quality issue [Unknown]
